FAERS Safety Report 6667480-2 (Version None)
Quarter: 2010Q1

REPORT INFORMATION
  Report Type: 
  Country: None (occurrence: None)
  Receive Date: 20100331
  Receipt Date: 20100318
  Transmission Date: 20100710
  Serious: Yes (Hospitalization)
  Sender: FDA-Public Use
  Company Number: THQ2010A00645

PATIENT

DRUGS (8)
  1. ACTOS [Suspect]
     Indication: DRUG USE FOR UNKNOWN INDICATION
     Dosage: 30 MG (30 MG, 1 IN 1 D) PER ORAL
     Route: 048
     Dates: end: 20100222
  2. DIFORMIN RETARD (METFORMIN HYCROCHLORIDE) [Concomitant]
  3. JANUFIA (ANTI-DIABETICS) [Concomitant]
  4. PRIMASPAN (ACETYLSALICYLIC  ACID) [Concomitant]
  5. LIPITOR [Concomitant]
  6. CARDACE (RAMPIPRIL) [Concomitant]
  7. EMCONCOR / 00302601 / (BISOPROPOLOL) [Concomitant]
  8. FURESIS (FUROSEMIDE) [Concomitant]

REACTIONS (4)
  - AORTIC VALVE STENOSIS [None]
  - CYANOSIS [None]
  - HYPOXIA [None]
  - PULMONARY OEDEMA [None]
